FAERS Safety Report 4992257-3 (Version None)
Quarter: 2006Q2

REPORT INFORMATION
  Report Type: 
  Country: None (occurrence: None)
  Receive Date: 20060502
  Receipt Date: 20060427
  Transmission Date: 20061013
  Serious: No
  Sender: FDA-Public Use
  Company Number: 7273 FOLLOW UP

PATIENT
  Sex: Female

DRUGS (1)
  1. ETHEZYME 830 (ETHEX CORP) [Suspect]

REACTIONS (1)
  - UNEVALUABLE EVENT [None]
